FAERS Safety Report 4358356-4 (Version None)
Quarter: 2004Q2

REPORT INFORMATION
  Report Type: 
  Country: None (occurrence: None)
  Receive Date: 20040514
  Receipt Date: 20031210
  Transmission Date: 20050107
  Serious: Yes (Hospitalization)
  Sender: FDA-Public Use
  Company Number: PHNU2003DE04364

PATIENT
  Age: 6 Year
  Sex: Female
  Weight: 15 kg

DRUGS (2)
  1. RITALIN [Suspect]
     Indication: ATTENTION DEFICIT/HYPERACTIVITY DISORDER
     Dosage: 15 MG/DAY
     Route: 048
     Dates: start: 20031001, end: 20031203
  2. RITALIN [Suspect]
     Dosage: 15 MG/DAY
     Route: 048
     Dates: start: 20031201, end: 20031201

REACTIONS (1)
  - HENOCH-SCHONLEIN PURPURA [None]
